FAERS Safety Report 15012699 (Version 11)
Quarter: 2018Q3

REPORT INFORMATION
  Report Type: Report from Study
  Country: US (occurrence: US)
  Receive Date: 20180614
  Receipt Date: 20180912
  Transmission Date: 20181010
  Serious: Yes (Hospitalization, Other)
  Sender: FDA-Public Use
  Company Number: US-GILEAD-2018-0344121

PATIENT
  Age: 81 Year
  Sex: Female

DRUGS (4)
  1. UPTRAVI [Concomitant]
     Active Substance: SELEXIPAG
  2. ADEMPAS [Concomitant]
     Active Substance: RIOCIGUAT
  3. AMBRISENTAN [Suspect]
     Active Substance: AMBRISENTAN
     Indication: PRODUCT USED FOR UNKNOWN INDICATION
     Dosage: 5 MG, QD
     Route: 065
     Dates: start: 20180424
  4. ADCIRCA [Concomitant]
     Active Substance: TADALAFIL

REACTIONS (30)
  - Hot flush [Not Recovered/Not Resolved]
  - Feeling cold [Not Recovered/Not Resolved]
  - Heart rate increased [Unknown]
  - Swollen tongue [Recovered/Resolved]
  - Abdominal discomfort [Not Recovered/Not Resolved]
  - Flushing [Not Recovered/Not Resolved]
  - Neck pain [Not Recovered/Not Resolved]
  - Pain in extremity [Not Recovered/Not Resolved]
  - Hypotension [Not Recovered/Not Resolved]
  - Surgery [Unknown]
  - Headache [Not Recovered/Not Resolved]
  - Myalgia [Not Recovered/Not Resolved]
  - Vomiting [Not Recovered/Not Resolved]
  - Dyspnoea [Not Recovered/Not Resolved]
  - Peripheral swelling [Not Recovered/Not Resolved]
  - Decreased appetite [Not Recovered/Not Resolved]
  - Swelling [Unknown]
  - Dyspepsia [Not Recovered/Not Resolved]
  - Pain [Unknown]
  - Arthralgia [Not Recovered/Not Resolved]
  - Candida infection [Not Recovered/Not Resolved]
  - Musculoskeletal pain [Not Recovered/Not Resolved]
  - Pain in jaw [Not Recovered/Not Resolved]
  - Retching [Not Recovered/Not Resolved]
  - Pulmonary arterial hypertension [Not Recovered/Not Resolved]
  - Angiopathy [Unknown]
  - Cough [Not Recovered/Not Resolved]
  - Nausea [Unknown]
  - Dizziness [Not Recovered/Not Resolved]
  - Presyncope [Not Recovered/Not Resolved]

NARRATIVE: CASE EVENT DATE: 20180712
